FAERS Safety Report 4403796-8 (Version None)
Quarter: 2004Q3

REPORT INFORMATION
  Report Type: 
  Country: None (occurrence: None)
  Receive Date: 20040719
  Receipt Date: 20040712
  Transmission Date: 20050211
  Serious: Yes (Death, Life-Threatening)
  Sender: FDA-Public Use
  Company Number: PERC20040011

PATIENT
  Age: 52 Year
  Sex: Male
  Weight: 65.318 kg

DRUGS (4)
  1. OXYCODONE HCL [Suspect]
     Dates: end: 20030901
  2. FENTANYL [Suspect]
  3. COCAINE [Suspect]
  4. DIAZEPAM [Suspect]

REACTIONS (22)
  - ACCIDENT [None]
  - AORTIC ATHEROSCLEROSIS [None]
  - CORONARY ARTERY ATHEROSCLEROSIS [None]
  - CORONARY ARTERY STENOSIS [None]
  - DRUG SCREEN POSITIVE [None]
  - DRUG TOXICITY [None]
  - ECCHYMOSIS [None]
  - EMPHYSEMA [None]
  - ERYTHEMA [None]
  - EXOSTOSIS [None]
  - EXTRAVASATION BLOOD [None]
  - HEPATIC CIRRHOSIS [None]
  - HEPATIC NEOPLASM MALIGNANT [None]
  - INJECTION SITE EXTRAVASATION [None]
  - NEPHROSCLEROSIS [None]
  - NERVOUS SYSTEM DISORDER [None]
  - PULMONARY CONGESTION [None]
  - PULMONARY FIBROSIS [None]
  - PULMONARY OEDEMA [None]
  - RENAL DISORDER [None]
  - VASCULAR CALCIFICATION [None]
  - VENTRICULAR HYPERTROPHY [None]
